FAERS Safety Report 5256586-0 (Version None)
Quarter: 2007Q1

REPORT INFORMATION
  Report Type: 
  Country: None (occurrence: None)
  Receive Date: 20070306
  Receipt Date: 20070223
  Transmission Date: 20070707
  Serious: No
  Sender: FDA-Public Use
  Company Number: 2006GB02254

PATIENT
  Age: 5481 Day
  Sex: Female
  Weight: 50 kg

DRUGS (1)
  1. ZOMIG [Suspect]
     Indication: MIGRAINE
     Route: 048
     Dates: start: 20061207, end: 20061207

REACTIONS (4)
  - FACIAL PAIN [None]
  - PAIN IN JAW [None]
  - PARAESTHESIA [None]
  - THROAT TIGHTNESS [None]
